FAERS Safety Report 17813252 (Version 2)
Quarter: 2020Q2

REPORT INFORMATION
  Report Type: Report from Study
  Country: IT (occurrence: IT)
  Receive Date: 20200521
  Receipt Date: 20200618
  Transmission Date: 20200714
  Serious: Yes (Hospitalization)
  Sender: FDA-Public Use
  Company Number: IT-PFIZER INC-2020198921

PATIENT
  Age: 71 Year
  Sex: Male

DRUGS (3)
  1. PLAQUENIL [Suspect]
     Active Substance: HYDROXYCHLOROQUINE SULFATE
     Indication: CORONAVIRUS INFECTION
     Dosage: 400 MG, 1X/DAY
     Route: 048
     Dates: start: 20200326, end: 20200409
  2. REZOLSTA [Concomitant]
     Active Substance: COBICISTAT\DARUNAVIR ETHANOLATE
     Indication: CORONAVIRUS INFECTION
     Dosage: UNK
     Route: 048
  3. ZITROMAX [Suspect]
     Active Substance: AZITHROMYCIN
     Indication: CORONAVIRUS INFECTION
     Dosage: 500 MG, 1X/DAY
     Route: 048
     Dates: start: 20200326, end: 20200406

REACTIONS (6)
  - Flushing [Recovered/Resolved]
  - Senile pruritus [Recovered/Resolved]
  - Skin exfoliation [Recovered/Resolved]
  - Feeling hot [Recovered/Resolved]
  - Skin reaction [Recovered/Resolved]
  - Erythema [Recovered/Resolved]

NARRATIVE: CASE EVENT DATE: 20200326
